FAERS Safety Report 23989714 (Version 1)
Quarter: 2024Q2

REPORT INFORMATION
  Report Type: Spontaneous
  Country: FR (occurrence: FR)
  Receive Date: 20240619
  Receipt Date: 20240619
  Transmission Date: 20240716
  Serious: Yes (Hospitalization)
  Sender: FDA-Public Use
  Company Number: None

PATIENT
  Age: 29 Year
  Sex: Male
  Weight: 63 kg

DRUGS (3)
  1. CEFPODOXIME [Suspect]
     Active Substance: CEFPODOXIME
     Indication: Cough
     Route: 048
     Dates: start: 20240517, end: 202405
  2. ESCARGOT [Suspect]
     Active Substance: ESCARGOT
     Indication: Cough
     Route: 048
     Dates: start: 20240517, end: 202405
  3. TRAMADOL [Suspect]
     Active Substance: TRAMADOL\TRAMADOL HYDROCHLORIDE
     Indication: Cough
     Dosage: TRAMADOL BASE
     Route: 048
     Dates: start: 20240517, end: 202405

REACTIONS (1)
  - Rash pruritic [Recovered/Resolved]

NARRATIVE: CASE EVENT DATE: 20240519
